FAERS Safety Report 7937447-2 (Version None)
Quarter: 2011Q4

REPORT INFORMATION
  Report Type: 
  Country: None (occurrence: None)
  Receive Date: 20111123
  Receipt Date: 20111116
  Transmission Date: 20120403
  Serious: Yes (Death, Other)
  Sender: FDA-Public Use
  Company Number: US-TEVA-308731USA

PATIENT
  Sex: Female
  Weight: 63.106 kg

DRUGS (31)
  1. TRAZODONE HCL [Interacting]
     Dosage: 25 MILLIGRAM;
     Route: 048
     Dates: start: 20111021, end: 20111027
  2. DULOXETINE HYDROCHLORIDE [Interacting]
     Dosage: EVERY OTHER DAY
     Route: 048
     Dates: start: 20111019, end: 20111025
  3. RISPERIDONE [Concomitant]
     Indication: DEMENTIA
     Dates: start: 20090912, end: 20111028
  4. MULTI-VITAMIN [Concomitant]
     Dates: start: 20101111, end: 20111028
  5. GLYCERYL TRINITRATE [Concomitant]
     Route: 062
     Dates: start: 20100630, end: 20111030
  6. POLYCARBOPHIL CALCIUM [Concomitant]
     Dates: start: 20110606, end: 20111028
  7. AZILECT [Interacting]
     Dosage: 1 MILLIGRAM;
     Route: 048
     Dates: start: 20111014, end: 20111020
  8. TRAZODONE HCL [Interacting]
     Indication: DEPRESSION
     Route: 048
     Dates: start: 20090326, end: 20111018
  9. ACETAMINOPHEN [Concomitant]
     Dates: start: 20010307, end: 20111028
  10. WARFARIN SODIUM [Concomitant]
     Dates: start: 20111005, end: 20111017
  11. BISACODYL [Concomitant]
     Dates: start: 20090320, end: 20111028
  12. AZILECT [Suspect]
     Indication: PARKINSON'S DISEASE
     Dosage: 1 MILLIGRAM;
     Route: 048
     Dates: start: 20111007, end: 20111013
  13. AZILECT [Interacting]
     Dosage: 1 MILLIGRAM;
     Route: 048
     Dates: start: 20110320, end: 20111013
  14. DULOXETINE HYDROCHLORIDE [Interacting]
     Dosage: 30 MILLIGRAM;
     Route: 048
     Dates: start: 20111014, end: 20111017
  15. MAGNESIUM HYDROXIDE [Concomitant]
     Dates: start: 20090320, end: 20111029
  16. TRAZODONE HCL [Interacting]
     Dosage: 50 MILLIGRAM;
     Route: 048
     Dates: start: 20111014, end: 20111020
  17. DULOXETINE HYDROCHLORIDE [Interacting]
     Dosage: 30 MILLIGRAM;
     Route: 048
     Dates: start: 20111028, end: 20111028
  18. NUEDEXTA [Interacting]
     Indication: DEPRESSION
  19. TRAZODONE HCL [Interacting]
     Indication: ANXIETY
     Dosage: 25 MILLIGRAM;
     Route: 048
     Dates: start: 20110205, end: 20111013
  20. DULOXETINE HYDROCHLORIDE [Interacting]
     Indication: DEPRESSION
     Dosage: 60 MILLIGRAM;
     Route: 048
     Dates: start: 20110915, end: 20111013
  21. DULOXETINE HYDROCHLORIDE [Interacting]
     Dosage: 30 MILLIGRAM;
     Route: 048
     Dates: start: 20111025, end: 20111025
  22. RISPERIDONE [Concomitant]
     Dates: start: 20110610, end: 20111030
  23. WARFARIN SODIUM [Concomitant]
     Route: 048
     Dates: start: 20111004, end: 20111029
  24. TRAZODONE HCL [Interacting]
     Dosage: 50 MILLIGRAM;
     Route: 048
     Dates: start: 20110302, end: 20111013
  25. ROPINIROLE HYDROCHLORIDE [Concomitant]
     Indication: PARKINSON'S DISEASE
     Dates: start: 20090320, end: 20111028
  26. ACETAMINOPHEN [Concomitant]
     Indication: PAIN
     Dates: start: 20091217, end: 20111028
  27. NUEDEXTA [Interacting]
     Indication: CRYING
     Dosage: 20/10 MG
     Route: 048
     Dates: start: 20111026, end: 20111028
  28. WARFARIN SODIUM [Concomitant]
     Route: 048
     Dates: start: 20111018, end: 20111028
  29. SENOKOT [Concomitant]
     Dates: start: 20110524, end: 20111028
  30. SINEMET [Concomitant]
     Indication: PARKINSON'S DISEASE
     Dosage: 25/100 MG
     Dates: start: 20090320, end: 20111028
  31. WARFARIN SODIUM [Concomitant]
     Indication: ATRIAL FIBRILLATION
     Route: 048
     Dates: start: 20110929, end: 20111003

REACTIONS (9)
  - UNRESPONSIVE TO STIMULI [None]
  - BLOOD ELECTROLYTES ABNORMAL [None]
  - PYREXIA [None]
  - DRUG INTERACTION [None]
  - COMA [None]
  - BLOOD PRESSURE INCREASED [None]
  - SEROTONIN SYNDROME [None]
  - DEATH [None]
  - DYSSTASIA [None]
